FAERS Safety Report 4390190-1 (Version None)
Quarter: 2004Q3

REPORT INFORMATION
  Report Type: 
  Country: None (occurrence: None)
  Receive Date: 20040706
  Receipt Date: 20040626
  Transmission Date: 20050211
  Serious: Yes (Other)
  Sender: FDA-Public Use
  Company Number: FR-GLAXOSMITHKLINE-B0336993A

PATIENT
  Age: 3 Year
  Sex: Male

DRUGS (1)
  1. ZOVIRAX [Suspect]
     Indication: VARICELLA
     Dosage: 5ML FIVE TIMES PER DAY
     Route: 048
     Dates: start: 20040601, end: 20040601

REACTIONS (3)
  - HALLUCINATION [None]
  - INCOHERENT [None]
  - INSOMNIA [None]
